FAERS Safety Report 4699728-8 (Version None)
Quarter: 2005Q2

REPORT INFORMATION
  Report Type: 
  Country: None (occurrence: None)
  Receive Date: 20050624
  Receipt Date: 20011120
  Transmission Date: 20051028
  Serious: Yes (Hospitalization)
  Sender: FDA-Public Use
  Company Number: JP-ABBOTT-01P-087-0113181-00

PATIENT
  Sex: Male

DRUGS (10)
  1. NORVIR [Suspect]
     Indication: HIV INFECTION
     Route: 048
     Dates: start: 19991102, end: 20040707
  2. NORVIR [Suspect]
     Route: 048
     Dates: start: 20040708
  3. ABACAVIR SULFATE [Suspect]
     Indication: HIV INFECTION
     Route: 048
     Dates: start: 19991102
  4. INDINAVIR [Suspect]
     Indication: HIV INFECTION
     Route: 048
     Dates: start: 19991102, end: 20040707
  5. EFAVIRENZ [Suspect]
     Indication: HIV INFECTION
     Route: 048
     Dates: start: 19991102
  6. PENTAMIDINE ISETHIONATE [Concomitant]
     Indication: INFECTION PROPHYLAXIS
     Dates: start: 19991102, end: 20010417
  7. ISONIAZID [Concomitant]
     Indication: PULMONARY TUBERCULOSIS
     Dates: start: 20001213, end: 20020527
  8. ETHAMBUTOL DIHYDROCHLORIDE [Concomitant]
     Indication: PULMONARY TUBERCULOSIS
     Dates: start: 20001213, end: 20020527
  9. LEVOFLOXACIN [Concomitant]
     Indication: PULMONARY TUBERCULOSIS
     Dates: start: 20001213, end: 20020527
  10. ATAZANAVIR [Concomitant]
     Indication: HIV INFECTION
     Route: 048
     Dates: start: 20040708

REACTIONS (3)
  - GYNAECOMASTIA [None]
  - HYPERLIPIDAEMIA [None]
  - PULMONARY TUBERCULOSIS [None]
